FAERS Safety Report 5771743-2 (Version None)
Quarter: 2008Q2

REPORT INFORMATION
  Report Type: 
  Country: None (occurrence: None)
  Receive Date: 20080613
  Receipt Date: 20080604
  Transmission Date: 20081010
  Serious: Yes (Life-Threatening, Hospitalization, Congenital Anomaly, Other)
  Sender: FDA-Public Use
  Company Number: HR-NOVOPROD-269889

PATIENT
  Sex: Male
  Weight: 4.2 kg

DRUGS (2)
  1. NOVORAPID [Suspect]
     Indication: TYPE 1 DIABETES MELLITUS
     Dosage: 26 U, QD
     Route: 064
     Dates: start: 20021010
  2. LEVEMIR [Suspect]
     Indication: TYPE 1 DIABETES MELLITUS
     Dosage: 27 U, QD
     Route: 064
     Dates: start: 20060608, end: 20070117

REACTIONS (11)
  - CAUDAL REGRESSION SYNDROME [None]
  - CONGENITAL ABSENCE OF BILE DUCTS [None]
  - CONGENITAL GENITAL MALFORMATION [None]
  - FAECAL INCONTINENCE [None]
  - FALLOT'S TETRALOGY [None]
  - HYPOSPADIAS [None]
  - PATENT DUCTUS ARTERIOSUS [None]
  - SPINA BIFIDA [None]
  - SPLEEN MALFORMATION [None]
  - TALIPES [None]
  - VERTICAL TALUS [None]
